FAERS Safety Report 17391303 (Version 3)
Quarter: 2021Q4

REPORT INFORMATION
  Report Type: Spontaneous
  Country: US (occurrence: US)
  Receive Date: 20200207
  Receipt Date: 20211012
  Transmission Date: 20220303
  Serious: Yes (Hospitalization)
  Sender: FDA-Public Use
  Company Number: US-VERTEX PHARMACEUTICALS-2020-001320

PATIENT
  Age: 53 Year
  Sex: Male
  Weight: 85 kg

DRUGS (8)
  1. TRIKAFTA [Suspect]
     Active Substance: ELEXACAFTOR\IVACAFTOR\TEZACAFTOR
     Indication: Cystic fibrosis
     Dosage: 2 TABLETS(100MG ELEXACAFTOR/50MG TEZACAFTOR/75MG IVACAFTOR) AM AND 1 TABLET(150MG IVACAFTOR) PM
     Route: 048
     Dates: start: 201912, end: 202003
  2. TRIKAFTA [Suspect]
     Active Substance: ELEXACAFTOR\IVACAFTOR\TEZACAFTOR
     Dosage: 1 TABLET(150MG IVACAFTOR) AM; 2 TABLETS(100MG ELEXACAFTOR/50MG TEZACAFTOR/75MG IVACAFTOR) PM
     Route: 048
     Dates: start: 202003, end: 202109
  3. TRIKAFTA [Suspect]
     Active Substance: ELEXACAFTOR\IVACAFTOR\TEZACAFTOR
     Dosage: SWITCHED BACK; 2 ORANGE TABS (100 MG ELEXA/50 MG TEZA/75 MG IVA) AM; 1 BLUE TAB (150 MG IVA) PM
     Route: 048
     Dates: start: 202109
  4. CANNABIDIOL [Suspect]
     Active Substance: CANNABIDIOL
     Indication: Product used for unknown indication
     Route: 065
  5. AMLODIPINE [Concomitant]
     Active Substance: AMLODIPINE BESYLATE
     Dosage: UNK
  6. CHOLECALCIFEROL [Concomitant]
     Active Substance: CHOLECALCIFEROL
     Dosage: UNK
  7. SODIUM CHLORIDE [Concomitant]
     Active Substance: SODIUM CHLORIDE
     Dosage: UNK
  8. STREPTODORNASE\STREPTOKINASE [Concomitant]
     Active Substance: STREPTODORNASE\STREPTOKINASE
     Dosage: UNK

REACTIONS (10)
  - Headache [Unknown]
  - Abdominal pain upper [Not Recovered/Not Resolved]
  - Facial paresis [Unknown]
  - Feeling abnormal [Recovered/Resolved]
  - Heat exhaustion [Unknown]
  - Hyperhidrosis [Unknown]
  - Fatigue [Recovering/Resolving]
  - Cough [Not Recovered/Not Resolved]
  - Chest pain [Not Recovered/Not Resolved]
  - Burning sensation [Not Recovered/Not Resolved]

NARRATIVE: CASE EVENT DATE: 20200101
